FAERS Safety Report 6579952-X (Version None)
Quarter: 2010Q1

REPORT INFORMATION
  Report Type: 
  Country: None (occurrence: None)
  Receive Date: 20100212
  Receipt Date: 20100203
  Transmission Date: 20100710
  Serious: Yes (Other)
  Sender: FDA-Public Use
  Company Number: JP-PFIZER INC-2010016810

PATIENT
  Age: 71 Year
  Sex: Female

DRUGS (1)
  1. CELECOX [Suspect]
     Dosage: UNK
     Route: 048
     Dates: start: 20100203, end: 20100203

REACTIONS (1)
  - MUSCULOSKELETAL STIFFNESS [None]
